FAERS Safety Report 9367663 (Version 1)
Quarter: 2013Q2

REPORT INFORMATION
  Report Type: Spontaneous
  Country: US (occurrence: US)
  Receive Date: 20130625
  Receipt Date: 20130625
  Transmission Date: 20140414
  Serious: Yes (Hospitalization)
  Sender: FDA-Public Use
  Company Number: US-B.I. PHARMACEUTICALS,INC./RIDGEFIELD-2013-BI-17794BP

PATIENT
  Age: 58 Year
  Sex: Male
  Weight: 86 kg

DRUGS (5)
  1. COMBIVENT [Suspect]
     Indication: CHRONIC OBSTRUCTIVE PULMONARY DISEASE
     Dosage: STRENGTH: 18 MCG / 103 MCG; DAILY DOSE: 144 MCG/824 MCG
     Route: 055
     Dates: start: 2003, end: 201305
  2. COMBIVENT RESPIMAT [Concomitant]
     Indication: CHRONIC OBSTRUCTIVE PULMONARY DISEASE
     Route: 055
     Dates: start: 20130602
  3. DEPAKOTE [Concomitant]
     Indication: CONVULSION
     Dates: start: 2012
  4. LORAZEPAM [Concomitant]
     Indication: CONVULSION
     Dates: start: 2003
  5. SOLUMEDROL [Concomitant]
     Indication: CHRONIC OBSTRUCTIVE PULMONARY DISEASE
     Dates: start: 1984

REACTIONS (9)
  - Myocardial infarction [Recovered/Resolved]
  - Hepatic failure [Recovered/Resolved]
  - Renal failure [Recovered/Resolved]
  - Pulmonary embolism [Recovered/Resolved]
  - Deep vein thrombosis [Recovered/Resolved]
  - Dyspnoea [Recovered/Resolved]
  - Blood iron decreased [Recovered/Resolved]
  - Prostatomegaly [Recovered/Resolved]
  - Chest discomfort [Recovered/Resolved]
